FAERS Safety Report 18993165 (Version 2)
Quarter: 2021Q1

REPORT INFORMATION
  Report Type: Spontaneous
  Country: SI (occurrence: SI)
  Receive Date: 20210310
  Receipt Date: 20210323
  Transmission Date: 20210420
  Serious: Yes (Death, Other)
  Sender: FDA-Public Use
  Company Number: SI-JNJFOC-20210309767

PATIENT
  Age: 57 Year
  Sex: Male

DRUGS (13)
  1. DARZALEX [Suspect]
     Active Substance: DARATUMUMAB
     Indication: PRODUCT USED FOR UNKNOWN INDICATION
     Route: 042
  2. CONCOR [Concomitant]
     Active Substance: BISOPROLOL FUMARATE
  3. ASPIRIN. [Concomitant]
     Active Substance: ASPIRIN
  4. ASENTRA [Concomitant]
     Active Substance: SERTRALINE HYDROCHLORIDE
  5. NOLPAZA [Concomitant]
     Active Substance: PANTOPRAZOLE SODIUM
  6. DEXAMETHASONE. [Suspect]
     Active Substance: DEXAMETHASONE
     Indication: PRODUCT USED FOR UNKNOWN INDICATION
     Dosage: EVERY WEDNESDAY WHILE RECEIVING LENALIDOMIDE
     Route: 065
  7. ALOPURINOL [Concomitant]
     Active Substance: ALLOPURINOL
  8. VALTREX [Concomitant]
     Active Substance: VALACYCLOVIR HYDROCHLORIDE
  9. HIDROCORTIZON [Concomitant]
     Dosage: 10+5+5 MG
  10. LENALIDOMIDE [Suspect]
     Active Substance: LENALIDOMIDE
     Indication: PRODUCT USED FOR UNKNOWN INDICATION
     Route: 065
  11. EDEMID [Concomitant]
     Active Substance: FUROSEMIDE
  12. PLIVIT D3 [Concomitant]
     Active Substance: CHOLECALCIFEROL
  13. SORVASTA [Concomitant]
     Active Substance: ROSUVASTATIN CALCIUM

REACTIONS (6)
  - Cardiac failure chronic [Unknown]
  - Prostatitis [Unknown]
  - Urinary tract infection [Unknown]
  - Urosepsis [Unknown]
  - Septic shock [Fatal]
  - Thrombocytopenia [Unknown]
